FAERS Safety Report 7721269-1 (Version None)
Quarter: 2011Q3

REPORT INFORMATION
  Report Type: 
  Country: None (occurrence: None)
  Receive Date: 20110825
  Receipt Date: 20110811
  Transmission Date: 20111222
  Serious: Yes (Hospitalization)
  Sender: FDA-Public Use
  Company Number: 1000023003

PATIENT
  Sex: Female

DRUGS (9)
  1. TRAMADOL HYDROCHLORIDE [Suspect]
     Dosage: 200 MG (100 MG,2 IN 1 D),ORAL
     Route: 048
     Dates: start: 20110609, end: 20110721
  2. LAMICTAL [Concomitant]
  3. MIRTAZAPINE [Suspect]
     Dosage: 15 MG (15 MG,1 IN 1 D),ORAL
     Route: 048
     Dates: start: 20110525, end: 20110721
  4. PROTELOS (STRONTIUM RANELATE) (STRONTIUM RANELATE) [Concomitant]
  5. SOTALEX (SOTALOL HYDROCHLORIDE) (TABLETS) (SOTALOL HYDROCHLORIDE) [Concomitant]
  6. KARDEGIC (ACETYLSALICYLATE LYSINE) (POWDER) (ACETYLSALICYLATE LYSINE) [Concomitant]
  7. RAMIPRIL [Concomitant]
  8. MEMANTINE HYDROCHLORIDE [Suspect]
     Dosage: 10 MG (10 MG,1 IN 1 D),ORAL
     Route: 048
     Dates: start: 20110525
  9. DOLIPRANE (PARACETAMOL) (PARACETAMOL) [Concomitant]

REACTIONS (12)
  - AREFLEXIA [None]
  - BACK PAIN [None]
  - ELECTROCARDIOGRAM ABNORMAL [None]
  - MUSCULOSKELETAL PAIN [None]
  - CONSTIPATION [None]
  - PAIN IN EXTREMITY [None]
  - OEDEMA [None]
  - C-REACTIVE PROTEIN INCREASED [None]
  - RALES [None]
  - ABDOMINAL PAIN UPPER [None]
  - DISORIENTATION [None]
  - PARTIAL SEIZURES WITH SECONDARY GENERALISATION [None]
